FAERS Safety Report 15939846 (Version 1)
Quarter: 2019Q1

REPORT INFORMATION
  Report Type: Spontaneous
  Country: US (occurrence: US)
  Receive Date: 20190208
  Receipt Date: 20190208
  Transmission Date: 20190417
  Serious: No
  Sender: FDA-Public Use
  Company Number: US-GALDERMA-US18043524

PATIENT
  Sex: Female

DRUGS (1)
  1. DESONIDE (DESONIDE) 0.05% [Suspect]
     Active Substance: DESONIDE
     Indication: ROSACEA
     Dosage: 0.05%
     Route: 061
     Dates: start: 20180722

REACTIONS (5)
  - Drug ineffective [Unknown]
  - Skin burning sensation [Unknown]
  - Skin discomfort [Unknown]
  - Product use in unapproved indication [Recovered/Resolved]
  - Erythema [Unknown]
